FAERS Safety Report 7700347-7 (Version None)
Quarter: 2011Q3

REPORT INFORMATION
  Report Type: 
  Country: None (occurrence: None)
  Receive Date: 20110822
  Receipt Date: 20110816
  Transmission Date: 20111222
  Serious: Yes (Hospitalization, Other)
  Sender: FDA-Public Use
  Company Number: PHHY2011US48184

PATIENT
  Sex: Female
  Weight: 75.737 kg

DRUGS (1)
  1. COMBIPATCH [Suspect]
     Indication: HOT FLUSH
     Dosage: 0.05/0.14 MG
     Route: 062

REACTIONS (4)
  - PNEUMONIA [None]
  - DEEP VEIN THROMBOSIS [None]
  - PALPITATIONS [None]
  - ANXIETY [None]
